FAERS Safety Report 9522746 (Version 1)
Quarter: 2013Q1

REPORT INFORMATION
  Report Type: Spontaneous
  Country: US (occurrence: None)
  Receive Date: 20130305
  Receipt Date: 20130305
  Transmission Date: 20140127
  Serious: Yes (Other)
  Sender: FDA-Public Use
  Company Number: 163-21880-12070619

PATIENT
  Age: 71 Year
  Sex: Female

DRUGS (6)
  1. REVLIMID (LENALIDOMIDE) (CAPSULES) [Suspect]
     Indication: PLASMA CELL MYELOMA
     Dosage: 10 MG, 14 IN 28 D, PO
     Route: 048
     Dates: start: 201207
  2. BACTRIM [Suspect]
     Indication: PRODUCT USED FOR UNKNOWN INDICATION
     Dates: start: 2012
  3. TYLENOL EXTRA STRENGTH (PARACETAMOL) UNKNOWN) [Concomitant]
  4. VELCADE (BORTEZOMIB) [Concomitant]
  5. ALLOPURINAOL (ALLOPURINOL) [Concomitant]
  6. ACYCLOVIR (ACICLOVIR) (ACICLOVIR) [Concomitant]

REACTIONS (1)
  - Rash generalised [None]
